FAERS Safety Report 19053300 (Version 1)
Quarter: 2021Q1

REPORT INFORMATION
  Report Type: Spontaneous
  Country: US (occurrence: US)
  Receive Date: 20210324
  Receipt Date: 20210324
  Transmission Date: 20210420
  Serious: Yes (Death, Life-Threatening, Hospitalization)
  Sender: FDA-Public Use
  Company Number: US-MYLANLABS-2021M1017646

PATIENT
  Age: 44 Year
  Sex: Male
  Weight: 150 kg

DRUGS (6)
  1. HYDROCORTISONE. [Suspect]
     Active Substance: HYDROCORTISONE
     Indication: SEPTIC SHOCK
     Dosage: INFUSION
     Route: 042
  2. HEPARIN [Concomitant]
     Active Substance: HEPARIN SODIUM
     Indication: THROMBOSIS PROPHYLAXIS
     Dosage: 500 UNITS, Q8H
     Route: 058
  3. EPINEPHRINE. [Suspect]
     Active Substance: EPINEPHRINE
     Indication: SEPTIC SHOCK
     Dosage: INFUSION
     Route: 042
  4. GIAPREZA [Suspect]
     Active Substance: ANGIOTENSIN II
     Indication: SEPTIC SHOCK
     Dosage: 10NG/KG/MIN, INFUSION
  5. NOREPINEPHRINE. [Suspect]
     Active Substance: NOREPINEPHRINE
     Indication: SEPTIC SHOCK
     Dosage: INFUSION
     Route: 042
  6. VASOPRESSIN. [Suspect]
     Active Substance: VASOPRESSIN
     Indication: SEPTIC SHOCK
     Dosage: INFUSION

REACTIONS (4)
  - Drug ineffective [Fatal]
  - Intestinal ischaemia [Not Recovered/Not Resolved]
  - Condition aggravated [Not Recovered/Not Resolved]
  - Abdominal pain [Not Recovered/Not Resolved]
